FAERS Safety Report 21418086 (Version 1)
Quarter: 2022Q4

REPORT INFORMATION
  Report Type: Spontaneous
  Country: CN (occurrence: None)
  Receive Date: 20221006
  Receipt Date: 20221006
  Transmission Date: 20230113
  Serious: Yes (Other)
  Sender: FDA-Public Use
  Company Number: 2022A335197

PATIENT
  Age: 28855 Day
  Sex: Male
  Weight: 72 kg

DRUGS (1)
  1. ESOMEPRAZOLE SODIUM [Suspect]
     Active Substance: ESOMEPRAZOLE SODIUM
     Indication: Gastric ulcer
     Route: 042
     Dates: start: 20220906, end: 20220906

REACTIONS (5)
  - Irritability [Recovered/Resolved]
  - Tremor [Recovered/Resolved]
  - Depressed level of consciousness [Recovered/Resolved]
  - Aggression [Recovered/Resolved]
  - Dysarthria [Recovered/Resolved]

NARRATIVE: CASE EVENT DATE: 20220906
